FAERS Safety Report 6596361-8 (Version None)
Quarter: 2010Q1

REPORT INFORMATION
  Report Type: 
  Country: None (occurrence: None)
  Receive Date: 20100223
  Receipt Date: 20100210
  Transmission Date: 20100710
  Serious: Yes (Other)
  Sender: FDA-Public Use
  Company Number: US-ROCHE-686386

PATIENT
  Sex: Female

DRUGS (6)
  1. HERCEPTIN [Suspect]
     Indication: BREAST CANCER
     Dosage: FREQUENCY: EVERY CYCLE, FORM: INJECTION, SOLUTION, RECEIVED 5 CYCLES
     Route: 041
  2. HERCEPTIN [Suspect]
     Route: 041
  3. TAXOTERE [Suspect]
     Indication: BREAST CANCER
     Dosage: FREQUENCY: EVERY CYCLE, FORM: INJECTION, SOLUTION, RECEIVED 5 CYCLES
     Route: 041
  4. TAXOTERE [Suspect]
     Route: 041
  5. CARBOPLATIN [Suspect]
     Indication: BREAST CANCER
     Dosage: FREQUENCY: EVERY CYCLE, FORM: INJECTION, SOLUTION; RECEIVED 5 CYCLES
     Route: 041
  6. CARBOPLATIN [Suspect]
     Route: 041

REACTIONS (3)
  - BLISTER [None]
  - ERYTHEMA [None]
  - SKIN TOXICITY [None]
